FAERS Safety Report 4553173-4 (Version None)
Quarter: 2005Q1

REPORT INFORMATION
  Report Type: 
  Country: None (occurrence: None)
  Receive Date: 20050113
  Receipt Date: 20050103
  Transmission Date: 20050727
  Serious: Yes (Hospitalization)
  Sender: FDA-Public Use
  Company Number: 2005CG00021

PATIENT
  Age: 58 Year
  Sex: Male

DRUGS (5)
  1. IRESSA [Suspect]
     Indication: METASTASES TO LUNG
     Dates: start: 20041121, end: 20041122
  2. OXEOL [Concomitant]
  3. SOLUPRED [Concomitant]
  4. VENTOLIN [Concomitant]
  5. ATROVENT [Concomitant]

REACTIONS (2)
  - GENERAL PHYSICAL HEALTH DETERIORATION [None]
  - LUNG INFECTION [None]
